FAERS Safety Report 22073000 (Version 1)
Quarter: 2023Q1

REPORT INFORMATION
  Report Type: Report from Study
  Country: ES (occurrence: ES)
  Receive Date: 20230308
  Receipt Date: 20230308
  Transmission Date: 20230418
  Serious: Yes (Other)
  Sender: FDA-Public Use
  Company Number: ES-SAMSUNG BIOEPIS-SB-2023-06259

PATIENT
  Sex: Male

DRUGS (1)
  1. ETANERCEPT [Suspect]
     Active Substance: ETANERCEPT
     Indication: Axial spondyloarthritis
     Dosage: UNKNOWN
     Route: 065
     Dates: start: 20190528

REACTIONS (1)
  - Neuroma [Not Recovered/Not Resolved]

NARRATIVE: CASE EVENT DATE: 20221223
